FAERS Safety Report 8239779-X (Version None)
Quarter: 2012Q1

REPORT INFORMATION
  Report Type: 
  Country: None (occurrence: None)
  Receive Date: 20120328
  Receipt Date: 20120326
  Transmission Date: 20120608
  Serious: Yes (Life-Threatening, Hospitalization)
  Sender: FDA-Public Use
  Company Number: JP-B.I. PHARMACEUTICALS,INC./RIDGEFIELD-2011-BP-27602NB

PATIENT
  Sex: Male
  Weight: 68.1 kg

DRUGS (8)
  1. HEPARIN [Suspect]
     Indication: EXTRACORPOREAL CIRCULATION
     Route: 042
     Dates: start: 20111202, end: 20111202
  2. LOSARTAN POTASSIUM [Concomitant]
     Indication: CARDIAC FAILURE
     Dosage: 1.25 MG
     Route: 048
     Dates: start: 20111006, end: 20111201
  3. LASIX [Concomitant]
     Indication: CARDIAC FAILURE
     Dosage: 20 MG
     Route: 048
     Dates: start: 20111005, end: 20111201
  4. PRADAXA [Suspect]
     Indication: ANTICOAGULANT THERAPY
     Dosage: 220 MG
     Route: 048
     Dates: start: 20111031, end: 20111128
  5. BISOPROLOL FUMARATE [Concomitant]
     Indication: TACHYCARDIA
     Dosage: 5 MG
     Route: 048
     Dates: start: 20111013, end: 20111201
  6. INDAPAMIDE [Concomitant]
     Indication: CARDIAC FAILURE
     Dosage: 2 MG
     Route: 048
     Dates: start: 20111030, end: 20111201
  7. HEPARIN [Suspect]
     Indication: ANTICOAGULANT THERAPY
  8. ZOPICOOL [Concomitant]
     Indication: INSOMNIA
     Dosage: 7.5 MG
     Route: 048
     Dates: start: 20111021, end: 20111201

REACTIONS (3)
  - AORTIC VALVE REPLACEMENT [None]
  - CARDIAC TAMPONADE [None]
  - HAEMORRHAGIC DIATHESIS [None]
